FAERS Safety Report 7797255-2 (Version None)
Quarter: 2011Q4

REPORT INFORMATION
  Report Type: 
  Country: None (occurrence: None)
  Receive Date: 20111003
  Receipt Date: 20110923
  Transmission Date: 20120403
  Serious: Yes (Life-Threatening, Hospitalization)
  Sender: FDA-Public Use
  Company Number: DSA_47085_2011

PATIENT
  Sex: Female

DRUGS (6)
  1. SEROQUEL [Concomitant]
  2. CELEXA [Concomitant]
  3. HUMIRA [Concomitant]
  4. PAXIL [Concomitant]
  5. XENAZINE [Suspect]
     Indication: TARDIVE DYSKINESIA
     Dosage: (12.5 MG TID ORAL), (12.5 MG BID AM, 12.5 MG BID PM ORAL)
     Route: 048
     Dates: start: 20110525
  6. TYLENOL REGULAR [Concomitant]

REACTIONS (20)
  - MUSCULOSKELETAL STIFFNESS [None]
  - HYPOPHAGIA [None]
  - MALAISE [None]
  - DIVERTICULUM [None]
  - COUGH [None]
  - CARDIAC ARREST [None]
  - INSOMNIA [None]
  - FATIGUE [None]
  - HAEMATOCHEZIA [None]
  - HAEMORRHAGE [None]
  - DYSPHAGIA [None]
  - PALPITATIONS [None]
  - CARDIAC FLUTTER [None]
  - ANXIETY [None]
  - OESOPHAGEAL PERFORATION [None]
  - ASTHENIA [None]
  - MUSCULAR WEAKNESS [None]
  - CONDITION AGGRAVATED [None]
  - AGITATION [None]
  - HYPERTONIC BLADDER [None]
